FAERS Safety Report 13766439 (Version 5)
Quarter: 2019Q4

REPORT INFORMATION
  Report Type: Report from Study
  Country: CA (occurrence: CA)
  Receive Date: 20170719
  Receipt Date: 20191127
  Transmission Date: 20200122
  Serious: Yes (Hospitalization, Other)
  Sender: FDA-Public Use
  Company Number: PHHY2016CA111538

PATIENT
  Age: 68 Year
  Sex: Male

DRUGS (4)
  1. SANDOSTATIN LAR DEPOT [Suspect]
     Active Substance: OCTREOTIDE ACETATE
     Indication: CARCINOID TUMOUR
     Dosage: 20 MG, QMO (EVERY 4 WEEKS)
     Route: 030
     Dates: start: 20160714
  2. SANDOSTATIN LAR DEPOT [Suspect]
     Active Substance: OCTREOTIDE ACETATE
     Dosage: 30 MG, QMO (EVERY 4 WEEKS)
     Route: 030
     Dates: start: 20160811
  3. SANDOSTATIN LAR DEPOT [Suspect]
     Active Substance: OCTREOTIDE ACETATE
     Dosage: 30 MG, Q3W (EVERY 3 WEEKS)
     Route: 030
  4. SANDOSTATIN [Suspect]
     Active Substance: OCTREOTIDE ACETATE
     Indication: CARCINOID SYNDROME
     Dosage: UNK UG, TID (FOR 1 MONTH)
     Route: 058
     Dates: start: 20160530, end: 2016

REACTIONS (15)
  - Inappropriate schedule of product administration [Unknown]
  - Pneumonia [Recovered/Resolved]
  - Chromaturia [Unknown]
  - Feeling abnormal [Unknown]
  - Blood pressure abnormal [Unknown]
  - Urinary tract infection [Unknown]
  - Urinary tract infection [Unknown]
  - Blood pressure increased [Unknown]
  - Diarrhoea [Unknown]
  - Pyrexia [Recovered/Resolved]
  - Gastrointestinal infection [Unknown]
  - Urinary tract infection [Recovered/Resolved]
  - Arthralgia [Unknown]
  - Aspiration [Recovered/Resolved]
  - Loss of consciousness [Recovered/Resolved]

NARRATIVE: CASE EVENT DATE: 20160804
